FAERS Safety Report 5305305-8 (Version None)
Quarter: 2007Q2

REPORT INFORMATION
  Report Type: 
  Country: None (occurrence: None)
  Receive Date: 20070424
  Receipt Date: 20070418
  Transmission Date: 20071010
  Serious: Yes (Death, Other)
  Sender: FDA-Public Use
  Company Number: PHBS2007JP04179

PATIENT
  Age: 57 Year
  Sex: Female

DRUGS (4)
  1. NEORAL [Suspect]
     Indication: RENAL TRANSPLANT
     Route: 065
  2. AZANIN [Suspect]
     Indication: RENAL TRANSPLANT
     Dosage: UNK, UNK
     Route: 065
     Dates: end: 20010101
  3. PREDONINE [Suspect]
     Indication: RENAL TRANSPLANT
     Dosage: UNK, UNK
     Route: 065
     Dates: end: 19930101
  4. MYCOPHENOLATE MOFETIL [Suspect]
     Indication: RENAL TRANSPLANT
     Dosage: UNK, UNK
     Route: 065
     Dates: start: 20010101

REACTIONS (10)
  - ABNORMAL BEHAVIOUR [None]
  - BLOOD CREATININE INCREASED [None]
  - BRAIN NEOPLASM [None]
  - BRAIN OEDEMA [None]
  - CHRONIC ALLOGRAFT NEPHROPATHY [None]
  - HEADACHE [None]
  - INTERLEUKIN-2 RECEPTOR INCREASED [None]
  - LYMPHOMA [None]
  - NEUROLOGICAL SYMPTOM [None]
  - PROTEINURIA [None]
